FAERS Safety Report 17319582 (Version 2)
Quarter: 2020Q1

REPORT INFORMATION
  Report Type: Report from Study
  Country: None (occurrence: NL)
  Receive Date: 20200125
  Receipt Date: 20200207
  Transmission Date: 20200409
  Serious: Yes (Death, Other)
  Sender: FDA-Public Use
  Company Number: NL-ABBVIE-17K-114-1999985-00

PATIENT
  Age: 81 Year
  Sex: Male

DRUGS (7)
  1. DUODOPA [Suspect]
     Active Substance: CARBIDOPA\LEVODOPA
     Indication: PARKINSON^S DISEASE
     Dosage: MORNING DOSE: 13 CONTINUOUS DOSE:? 3.3   EXTRA DOSE:  4
     Route: 050
     Dates: start: 20160510
  2. DUODOPA [Suspect]
     Active Substance: CARBIDOPA\LEVODOPA
     Route: 050
  3. DUODOPA [Suspect]
     Active Substance: CARBIDOPA\LEVODOPA
     Route: 050
  4. DUODOPA [Suspect]
     Active Substance: CARBIDOPA\LEVODOPA
     Route: 050
  5. DUODOPA [Suspect]
     Active Substance: CARBIDOPA\LEVODOPA
     Dosage: DOSE INCREASED
     Route: 050
  6. MACROGOL [Concomitant]
     Active Substance: POLYETHYLENE GLYCOLS
     Indication: ABNORMAL FAECES
     Route: 065
  7. LEVODOPA/CARBIDOPA [Concomitant]
     Active Substance: CARBIDOPA\LEVODOPA
     Indication: PARKINSON^S DISEASE
     Dosage: DURING THE NIGHT

REACTIONS (41)
  - Wrong technique in device usage process [Recovered/Resolved]
  - Mobility decreased [Not Recovered/Not Resolved]
  - Medical device site discolouration [Unknown]
  - Memory impairment [Not Recovered/Not Resolved]
  - Fine motor skill dysfunction [Not Recovered/Not Resolved]
  - Bradykinesia [Not Recovered/Not Resolved]
  - Red blood cell sedimentation rate increased [Unknown]
  - Leukocytosis [Unknown]
  - Hypophagia [Not Recovered/Not Resolved]
  - On and off phenomenon [Not Recovered/Not Resolved]
  - Stoma site discharge [Not Recovered/Not Resolved]
  - Muscle rigidity [Not Recovered/Not Resolved]
  - Salivary hypersecretion [Not Recovered/Not Resolved]
  - Dysstasia [Not Recovered/Not Resolved]
  - Death [Fatal]
  - Terminal state [Not Recovered/Not Resolved]
  - Freezing phenomenon [Recovered/Resolved]
  - Stoma site irritation [Recovered/Resolved]
  - Stoma site discomfort [Not Recovered/Not Resolved]
  - Stoma site erythema [Not Recovered/Not Resolved]
  - General physical health deterioration [Not Recovered/Not Resolved]
  - Fibroma [Recovered/Resolved]
  - Dementia [Not Recovered/Not Resolved]
  - Confusional state [Not Recovered/Not Resolved]
  - Hallucination [Not Recovered/Not Resolved]
  - Cognitive disorder [Not Recovered/Not Resolved]
  - Weight decreased [Unknown]
  - Stoma site discomfort [Recovered/Resolved]
  - Musculoskeletal stiffness [Not Recovered/Not Resolved]
  - Pneumonia [Recovered/Resolved]
  - Infrequent bowel movements [Not Recovered/Not Resolved]
  - Loss of personal independence in daily activities [Not Recovered/Not Resolved]
  - Fibroma [Unknown]
  - Depressed mood [Not Recovered/Not Resolved]
  - C-reactive protein increased [Unknown]
  - Inflammatory marker increased [Not Recovered/Not Resolved]
  - Gait disturbance [Not Recovered/Not Resolved]
  - Stoma site discharge [Recovered/Resolved]
  - Stoma site discharge [Recovered/Resolved]
  - Dyskinesia [Not Recovered/Not Resolved]
  - Hyperkinesia [Not Recovered/Not Resolved]

NARRATIVE: CASE EVENT DATE: 2019
